FAERS Safety Report 6510077-5 (Version None)
Quarter: 2009Q4

REPORT INFORMATION
  Report Type: 
  Country: None (occurrence: None)
  Receive Date: 20091222
  Receipt Date: 20091214
  Transmission Date: 20100525
  Serious: Yes (Hospitalization)
  Sender: FDA-Public Use
  Company Number: US-SANOFI-AVENTIS-2009SA009404

PATIENT
  Sex: Male

DRUGS (2)
  1. LANTUS [Suspect]
     Route: 065
  2. INFERGEN [Suspect]
     Route: 065

REACTIONS (2)
  - HOSPITALISATION [None]
  - MEDICATION ERROR [None]
